FAERS Safety Report 7718857-5 (Version None)
Quarter: 2011Q3

REPORT INFORMATION
  Report Type: 
  Country: None (occurrence: None)
  Receive Date: 20110830
  Receipt Date: 20110819
  Transmission Date: 20111222
  Serious: Yes (Life-Threatening, Hospitalization)
  Sender: FDA-Public Use
  Company Number: US-BAYER-2011-022076

PATIENT
  Age: 31 Year
  Sex: Female
  Weight: 121 kg

DRUGS (2)
  1. YASMIN [Suspect]
     Indication: CONTRACEPTION
     Dosage: UNK
     Dates: start: 20060426, end: 20070516
  2. MUCINEX DM [Concomitant]
     Dosage: UNK
     Dates: start: 20070605, end: 20070620

REACTIONS (4)
  - CARDIAC FAILURE [None]
  - PULMONARY EMBOLISM [None]
  - PAIN [None]
  - THROMBOSIS [None]
